FAERS Safety Report 7428986-1 (Version None)
Quarter: 2011Q2

REPORT INFORMATION
  Report Type: 
  Country: None (occurrence: None)
  Receive Date: 20110412
  Receipt Date: 20110408
  Transmission Date: 20111010
  Serious: Yes (Congenital Anomaly)
  Sender: FDA-Public Use
  Company Number: GRT 2011-10388

PATIENT

DRUGS (7)
  1. PROPOFAN (CAFFEINE, CARBASALATE CALCIUM, CHLORPHENAMINE MALEATE, DEXTR [Concomitant]
  2. MYOLASTAN (TETRAZEPAM) [Concomitant]
  3. LIDODERM [Suspect]
     Dates: start: 20090501, end: 20091001
  4. LYRICA [Concomitant]
  5. ESCITALOPRAM [Suspect]
     Dates: start: 20090501
  6. FOLIC ACID [Concomitant]
  7. ATARAX [Suspect]
     Dates: start: 20090501, end: 20091001

REACTIONS (5)
  - TALIPES [None]
  - MATERNAL DRUGS AFFECTING FOETUS [None]
  - ARNOLD-CHIARI MALFORMATION [None]
  - SPINA BIFIDA [None]
  - ABORTION INDUCED [None]
